FAERS Safety Report 23040375 (Version 1)
Quarter: 2023Q4

REPORT INFORMATION
  Report Type: Spontaneous
  Country: CA (occurrence: CA)
  Receive Date: 20231006
  Receipt Date: 20231006
  Transmission Date: 20240110
  Serious: Yes (Hospitalization, Other)
  Sender: FDA-Public Use
  Company Number: CA-PFIZER INC-202300311770

PATIENT
  Age: 77 Year
  Sex: Female
  Weight: 35 kg

DRUGS (17)
  1. HEPARIN SODIUM [Suspect]
     Active Substance: HEPARIN SODIUM
     Indication: Anticoagulant therapy
     Dosage: 5000 IU, 1 EVERY 12 HOURS
     Route: 058
  2. ACETAMINOPHEN [Concomitant]
     Active Substance: ACETAMINOPHEN
     Dosage: UNK
  3. BISACODYL [Concomitant]
     Active Substance: BISACODYL
     Dosage: UNK
  4. CALCIUM [Concomitant]
     Active Substance: CALCIUM
     Dosage: UNK
  5. DEXILANT [Concomitant]
     Active Substance: DEXLANSOPRAZOLE
     Dosage: UNK
  6. FUROSEMIDE [Concomitant]
     Active Substance: FUROSEMIDE
     Dosage: UNK
  7. LEVOTHYROXINE [Concomitant]
     Active Substance: LEVOTHYROXINE
     Dosage: UNK
  8. LORAZEPAM [Concomitant]
     Active Substance: LORAZEPAM
     Dosage: UNK
     Route: 065
  9. MORPHINE [Concomitant]
     Active Substance: MORPHINE
     Dosage: UNK
  10. NICOTINE [Concomitant]
     Active Substance: NICOTINE
     Dosage: UNK
  11. OSELTAMIVIR [Concomitant]
     Active Substance: OSELTAMIVIR
     Dosage: UNK
  12. POLYETHYLENE GLYCOLS [Concomitant]
     Active Substance: POLYETHYLENE GLYCOLS
     Dosage: UNK
  13. PREDNISONE [Concomitant]
     Active Substance: PREDNISONE
     Dosage: UNK
  14. ALBUTEROL [Concomitant]
     Active Substance: ALBUTEROL
     Dosage: UNK
  15. TIMOLOL/TRAVOPROST [Concomitant]
     Dosage: UNK
  16. VITAMIN D3 [Concomitant]
     Active Substance: CHOLECALCIFEROL
     Dosage: UNK
  17. ZERBAXA [Concomitant]
     Active Substance: CEFTOLOZANE SULFATE\TAZOBACTAM SODIUM
     Dosage: UNK

REACTIONS (2)
  - Hyperkalaemia [Recovered/Resolved]
  - Hypoaldosteronism [Recovered/Resolved]
